FAERS Safety Report 6298459-0 (Version None)
Quarter: 2009Q3

REPORT INFORMATION
  Report Type: 
  Country: None (occurrence: None)
  Receive Date: 20090724
  Receipt Date: 20090423
  Transmission Date: 20100115
  Serious: Yes (Hospitalization)
  Sender: FDA-Public Use
  Company Number: 2009BI001270

PATIENT
  Sex: Female

DRUGS (14)
  1. TYSABRI [Suspect]
     Indication: MULTIPLE SCLEROSIS
     Dosage: 300 MG; QM; IV
     Route: 042
     Dates: start: 20081031
  2. CITALOPRAM HYDROBROMIDE [Concomitant]
  3. DIAZEPAM [Concomitant]
  4. VERAMYST [Concomitant]
  5. MODAFINIL [Concomitant]
  6. MIRALAX [Concomitant]
  7. ZOLPIDEM [Concomitant]
  8. IBUPROFEN [Concomitant]
  9. CALCIUM [Concomitant]
  10. VITAMIN D3 [Concomitant]
  11. AVONEX [Concomitant]
  12. COPAXONE [Concomitant]
  13. DIAZEPAM [Concomitant]
  14. BUPROPION HCL [Concomitant]

REACTIONS (2)
  - HEADACHE [None]
  - MULTIPLE SCLEROSIS RELAPSE [None]
